FAERS Safety Report 19010453 (Version 1)
Quarter: 2021Q1

REPORT INFORMATION
  Report Type: Spontaneous
  Country: ES (occurrence: ES)
  Receive Date: 20210316
  Receipt Date: 20210316
  Transmission Date: 20210420
  Serious: Yes (Other)
  Sender: FDA-Public Use
  Company Number: ES-AUROBINDO-AUR-APL-2021-009908

PATIENT
  Sex: Female

DRUGS (4)
  1. IRINOTECAN [Suspect]
     Active Substance: IRINOTECAN
     Indication: SARCOMA
     Dosage: 20 MILLIGRAM, ONCE A DAY (20 MG, 1X/DAY (24H))
     Route: 065
     Dates: start: 201803
  2. GEMCITABINE. [Suspect]
     Active Substance: GEMCITABINE
     Indication: SARCOMA
     Dosage: UNK
     Route: 065
  3. DOCETAXEL CONCENTRATE FOR SOLUTION FOR INFUSION [Suspect]
     Active Substance: DOCETAXEL
     Indication: SARCOMA
     Dosage: UNK
     Route: 065
  4. TEMOZOLOMIDE. [Suspect]
     Active Substance: TEMOZOLOMIDE
     Indication: SARCOMA
     Dosage: 12 MILLIGRAM, ONCE A DAY (4 MG, 3X/DAY (EACH 8H))
     Route: 065
     Dates: start: 201803, end: 201808

REACTIONS (3)
  - Haematotoxicity [Unknown]
  - Toxicity to various agents [Unknown]
  - Neoplasm progression [Unknown]
